FAERS Safety Report 17439528 (Version 1)
Quarter: 2020Q1

REPORT INFORMATION
  Report Type: Spontaneous
  Country: US (occurrence: US)
  Receive Date: 20200220
  Receipt Date: 20200220
  Transmission Date: 20200409
  Serious: No
  Sender: FDA-Public Use
  Company Number: US-ASTRAZENECA-2020SE12944

PATIENT
  Age: 20780 Day
  Sex: Male
  Weight: 102.1 kg

DRUGS (8)
  1. SYMBICORT [Suspect]
     Active Substance: BUDESONIDE\FORMOTEROL FUMARATE DIHYDRATE
     Indication: ASTHMA
     Dosage: UNKNOWN UNKNOWN
     Route: 055
  2. SYMBICORT [Suspect]
     Active Substance: BUDESONIDE\FORMOTEROL FUMARATE DIHYDRATE
     Indication: ASTHMA
     Dosage: GENERIC,320 UG BID, TWO TIMES A DAY UNKNOWN
     Route: 055
  3. LOSARTEN [Concomitant]
     Active Substance: LOSARTAN
     Indication: BLOOD PRESSURE MEASUREMENT
  4. VITAMIN D [Concomitant]
     Active Substance: VITAMIN D NOS
  5. FAMOTIDINE. [Concomitant]
     Active Substance: FAMOTIDINE
     Indication: ULCER
  6. ALBUTEROL NEBULIZER [Concomitant]
     Active Substance: ALBUTEROL
     Indication: ASTHMA
     Dosage: 2.5UG UNKNOWN
  7. SIMVISTATIN [Concomitant]
     Active Substance: SIMVASTATIN
  8. TYLENOL [Concomitant]
     Active Substance: ACETAMINOPHEN
     Indication: ULCER

REACTIONS (3)
  - Cough [Unknown]
  - Therapeutic response changed [Unknown]
  - Wheezing [Unknown]

NARRATIVE: CASE EVENT DATE: 20200120
